FAERS Safety Report 8504319-4 (Version None)
Quarter: 2012Q3

REPORT INFORMATION
  Report Type: 
  Country: None (occurrence: None)
  Receive Date: 20120711
  Receipt Date: 20120706
  Transmission Date: 20120928
  Serious: Yes (Other)
  Sender: FDA-Public Use
  Company Number: US-PFIZER INC-2012162415

PATIENT
  Sex: Female

DRUGS (1)
  1. LYRICA [Suspect]
     Indication: FIBROMYALGIA
     Dosage: 25 MG, 2X/DAY

REACTIONS (7)
  - BALANCE DISORDER [None]
  - VISION BLURRED [None]
  - HEADACHE [None]
  - DIZZINESS [None]
  - NAUSEA [None]
  - FEAR [None]
  - MENTAL IMPAIRMENT [None]
